FAERS Safety Report 17529747 (Version 1)
Quarter: 2020Q1

REPORT INFORMATION
  Report Type: Spontaneous
  Country: US (occurrence: US)
  Receive Date: 20200311
  Receipt Date: 20200311
  Transmission Date: 20200409
  Serious: Yes (Life-Threatening)
  Sender: FDA-Public Use
  Company Number: US-BAUSCH-BL-2020-007690

PATIENT
  Age: 52 Year
  Sex: Male

DRUGS (1)
  1. PLENVU [Suspect]
     Active Substance: ASCORBIC ACID\POLYETHYLENE GLYCOL 3350\POTASSIUM CHLORIDE\SODIUM ASCORBATE\SODIUM CHLORIDE\SODIUM SULFATE
     Indication: BOWEL PREPARATION
     Dosage: STARTED ON 11/DEC/2019 AT (5:PM) ,12/DEC/2019 AT (3:AM)
     Route: 048
     Dates: start: 20191211, end: 20191212

REACTIONS (4)
  - Electrolyte imbalance [Unknown]
  - Dehydration [Unknown]
  - Blood potassium decreased [Unknown]
  - Atrial fibrillation [Not Recovered/Not Resolved]

NARRATIVE: CASE EVENT DATE: 201912
